FAERS Safety Report 6860625-0 (Version None)
Quarter: 2010Q3

REPORT INFORMATION
  Report Type: 
  Country: None (occurrence: None)
  Receive Date: 20100720
  Receipt Date: 20100706
  Transmission Date: 20110219
  Serious: Yes (Death, Hospitalization)
  Sender: FDA-Public Use
  Company Number: RU-JNJFOC-HOAFF17476

PATIENT
  Age: 42 Year
  Sex: Female

DRUGS (2)
  1. VERMOX [Suspect]
     Indication: ECHINOCOCCIASIS
     Route: 048
     Dates: start: 19900417, end: 19900430
  2. VERMOX [Suspect]
     Route: 048
     Dates: start: 19900417, end: 19900430

REACTIONS (12)
  - ABDOMINAL DISTENSION [None]
  - ABDOMINAL TENDERNESS [None]
  - AGRANULOCYTOSIS [None]
  - ASTHENIA [None]
  - BURNING SENSATION [None]
  - CARDIAC FAILURE [None]
  - CHILLS [None]
  - DIARRHOEA [None]
  - HYPERSENSITIVITY [None]
  - ORAL MUCOSAL ERUPTION [None]
  - PYREXIA [None]
  - TEARFULNESS [None]
